FAERS Safety Report 7068309-3 (Version None)
Quarter: 2010Q4

REPORT INFORMATION
  Report Type: 
  Country: None (occurrence: None)
  Receive Date: 20101028
  Receipt Date: 20101021
  Transmission Date: 20110411
  Serious: Yes (Hospitalization)
  Sender: FDA-Public Use
  Company Number: A0817039A

PATIENT
  Age: 44 Year
  Sex: Male

DRUGS (2)
  1. AVANDIA [Suspect]
     Route: 048
     Dates: start: 20040207, end: 20051001
  2. AVANDAMET [Suspect]
     Route: 048
     Dates: start: 20040610, end: 20060201

REACTIONS (1)
  - CEREBROVASCULAR ACCIDENT [None]
